FAERS Safety Report 6242873-6 (Version None)
Quarter: 2009Q2

REPORT INFORMATION
  Report Type: 
  Country: None (occurrence: None)
  Receive Date: 20090617
  Receipt Date: 20071106
  Transmission Date: 20091009
  Serious: No
  Sender: FDA-Public Use
  Company Number: 269199

PATIENT
  Age: 71 Year
  Sex: Male

DRUGS (5)
  1. LEVEMIR [Suspect]
     Indication: TYPE 1 DIABETES MELLITUS
     Dosage: 30-34 LU, QD, SUBCUTANEOUS
     Route: 058
     Dates: start: 20050101
  2. APIDRA [Concomitant]
  3. PLAVIX [Concomitant]
  4. ASPIRIN [Concomitant]
  5. HUMALOG [Concomitant]

REACTIONS (1)
  - INJECTION SITE HAEMATOMA [None]
